FAERS Safety Report 17600008 (Version 2)
Quarter: 2020Q2

REPORT INFORMATION
  Report Type: Spontaneous
  Country: PH (occurrence: PH)
  Receive Date: 20200330
  Receipt Date: 20200408
  Transmission Date: 20200713
  Serious: No
  Sender: FDA-Public Use
  Company Number: US-AMGEN-USASP2020049334

PATIENT
  Age: 80 Year
  Sex: Male

DRUGS (5)
  1. REPATHA [Suspect]
     Active Substance: EVOLOCUMAB
     Indication: LOW DENSITY LIPOPROTEIN ABNORMAL
     Dosage: 140 MILLIGRAM PER MILLILITRE, QMO
     Route: 065
     Dates: start: 20191026
  2. REPATHA [Suspect]
     Active Substance: EVOLOCUMAB
     Indication: BLOOD TRIGLYCERIDES ABNORMAL
     Dosage: 140 MILLIGRAM PER MILLILITRE, QMO
     Route: 065
  3. FISH OIL [Concomitant]
     Active Substance: FISH OIL
  4. REPATHA [Suspect]
     Active Substance: EVOLOCUMAB
     Dosage: 140 MILLIGRAM PER MILLILITRE, Q2WK
     Route: 065
  5. EZETIMIBE. [Concomitant]
     Active Substance: EZETIMIBE

REACTIONS (2)
  - Therapeutic product effect incomplete [Unknown]
  - Intentional product misuse [Unknown]
